FAERS Safety Report 11497782 (Version 2)
Quarter: 2015Q4

REPORT INFORMATION
  Report Type: Spontaneous
  Country: JP (occurrence: JP)
  Receive Date: 20150911
  Receipt Date: 20151016
  Transmission Date: 20160304
  Serious: Yes (Life-Threatening, Hospitalization)
  Sender: FDA-Public Use
  Company Number: JP-BAYER-2015-414918

PATIENT
  Age: 83 Year
  Sex: Female
  Weight: 44 kg

DRUGS (10)
  1. NEXAVAR [Suspect]
     Active Substance: SORAFENIB
     Indication: HEPATOCELLULAR CARCINOMA
     Dosage: DAILY DOSE 600 MG
     Route: 048
     Dates: start: 20150610, end: 20150806
  2. TRAMACET [PARACETAMOL,TRAMADOL] [Concomitant]
     Indication: BACK PAIN
     Dosage: DAILY DOSE 3 DF
     Route: 048
     Dates: start: 20150305, end: 20150821
  3. NEXAVAR [Suspect]
     Active Substance: SORAFENIB
     Indication: HEPATOCELLULAR CARCINOMA
     Dosage: 400 MG, QD
     Route: 048
     Dates: start: 20150512, end: 20150609
  4. BIOFERMIN R [Concomitant]
     Active Substance: BACILLUS SUBTILIS\LACTOBACILLUS ACIDOPHILUS\STREPTOCOCCUS FAECAIS
     Indication: DIARRHOEA
     Dosage: DAILY DOSE 600 MG
     Route: 048
     Dates: start: 20150717, end: 20150811
  5. LYRICA [Concomitant]
     Active Substance: PREGABALIN
     Indication: BACK PAIN
     Dosage: DAILY DOSE 150 MG
     Route: 048
     Dates: start: 20140603, end: 20150820
  6. VITAMINS NOS [Concomitant]
     Active Substance: VITAMINS
     Indication: BACK PAIN
     Dosage: DAILY DOSE 15 ?G
     Route: 048
     Dates: start: 20140617, end: 20150820
  7. REZALTAS [Concomitant]
     Active Substance: AZELNIDIPINE\OLMESARTAN MEDOXOMIL
     Indication: HYPERTENSION
     Dosage: DAILY DOSE 1 DF
     Route: 048
     Dates: start: 20150519, end: 20150811
  8. SPIRONOLACTONE. [Concomitant]
     Active Substance: SPIRONOLACTONE
     Dosage: DAILY DOSE 50 MG
     Route: 048
     Dates: start: 20150526, end: 20150609
  9. EDIROL [Concomitant]
     Active Substance: ELDECALCITOL
     Indication: OSTEOPOROSIS
     Dosage: DAILY DOSE .75 ?G
     Route: 048
     Dates: start: 20150501, end: 20150820
  10. THYRADIN S [Concomitant]
     Active Substance: LEVOTHYROXINE SODIUM
     Dosage: DAILY DOSE 25 MG
     Route: 048
     Dates: end: 20150517

REACTIONS (9)
  - General physical health deterioration [None]
  - Hypophagia [None]
  - Acute myocardial infarction [Recovering/Resolving]
  - Angina unstable [Recovering/Resolving]
  - Pyrexia [Recovering/Resolving]
  - Skin ulcer [Recovering/Resolving]
  - Liver abscess [Recovered/Resolved]
  - Subcutaneous haematoma [None]
  - Abdominal pain [Recovering/Resolving]

NARRATIVE: CASE EVENT DATE: 20150806
